FAERS Safety Report 6112472-5 (Version None)
Quarter: 2009Q1

REPORT INFORMATION
  Report Type: 
  Country: None (occurrence: None)
  Receive Date: 20090312
  Receipt Date: 20090309
  Transmission Date: 20090719
  Serious: Yes (Other)
  Sender: FDA-Public Use
  Company Number: US-JNJFOC-20090302316

PATIENT
  Age: 8 Year
  Sex: Male

DRUGS (4)
  1. CONCERTA [Suspect]
     Indication: ATTENTION DEFICIT/HYPERACTIVITY DISORDER
     Route: 048
  2. SINGULAIR [Concomitant]
     Indication: MULTIPLE ALLERGIES
     Route: 048
  3. ADVIR [Concomitant]
     Indication: MULTIPLE ALLERGIES
     Route: 055
  4. SEXARAT [Concomitant]
     Indication: CONSTIPATION
     Route: 048

REACTIONS (7)
  - ABDOMINAL PAIN [None]
  - ABNORMAL DREAMS [None]
  - CONSTIPATION [None]
  - FAECAL INCONTINENCE [None]
  - FREQUENT BOWEL MOVEMENTS [None]
  - HALLUCINATION [None]
  - RESTLESSNESS [None]
